FAERS Safety Report 10418062 (Version 1)
Quarter: 2014Q3

REPORT INFORMATION
  Report Type: Spontaneous
  Country: US (occurrence: None)
  Receive Date: 20140827
  Receipt Date: 20140827
  Transmission Date: 20150326
  Serious: Yes (Hospitalization, Other)
  Sender: FDA-Public Use
  Company Number: 2010S1000406

PATIENT
  Age: 68 Year
  Sex: Female
  Weight: 85 kg

DRUGS (6)
  1. HYDROCHLOROTHIAZIDE. [Concomitant]
     Active Substance: HYDROCHLOROTHIAZIDE
  2. BABY ASPIRIN [Concomitant]
     Active Substance: ASPIRIN
  3. LISINOPRIL. [Concomitant]
     Active Substance: LISINOPRIL
  4. PHOSPHO-SODA [Suspect]
     Active Substance: SODIUM PHOSPHATE, DIBASIC\SODIUM PHOSPHATE, MONOBASIC
     Indication: COLONOSCOPY
     Route: 048
     Dates: start: 20050919, end: 20050919
  5. SYNTHROID [Concomitant]
     Active Substance: LEVOTHYROXINE SODIUM
  6. SYNTHROID [Concomitant]
     Active Substance: LEVOTHYROXINE SODIUM

REACTIONS (18)
  - Chest pain [None]
  - Malaise [None]
  - Nephrogenic anaemia [None]
  - Renal tubular necrosis [None]
  - Renal failure chronic [None]
  - Renal failure acute [None]
  - Blood phosphorus increased [None]
  - Discomfort [None]
  - Arthritis [None]
  - Urinary tract infection [None]
  - Hypertension [None]
  - Hypocalcaemia [None]
  - Rash [None]
  - Nausea [None]
  - Vomiting [None]
  - Dehydration [None]
  - Hypokalaemia [None]
  - Nocturia [None]

NARRATIVE: CASE EVENT DATE: 20050922
